FAERS Safety Report 17166560 (Version 2)
Quarter: 2020Q1

REPORT INFORMATION
  Report Type: Spontaneous
  Country: US (occurrence: US)
  Receive Date: 20191217
  Receipt Date: 20200106
  Transmission Date: 20200409
  Serious: Yes (Hospitalization)
  Sender: FDA-Public Use
  Company Number: US-TEVA-2019-US-1153037

PATIENT
  Age: 2 Day
  Sex: Female

DRUGS (3)
  1. METHIMAZOLE. [Suspect]
     Active Substance: METHIMAZOLE
     Route: 064
  2. METOPROLOL. [Suspect]
     Active Substance: METOPROLOL
     Route: 064
  3. PROPYLTHIOURACIL. [Suspect]
     Active Substance: PROPYLTHIOURACIL
     Route: 064

REACTIONS (2)
  - Fallot^s tetralogy [Recovering/Resolving]
  - Foetal exposure during pregnancy [Unknown]
